FAERS Safety Report 4876273-8 (Version None)
Quarter: 2005Q4

REPORT INFORMATION
  Report Type: 
  Country: None (occurrence: None)
  Receive Date: 20051206
  Receipt Date: 20051025
  Transmission Date: 20060501
  Serious: No
  Sender: FDA-Public Use
  Company Number: USA0510111823

PATIENT
  Age: 42 Year
  Sex: Male

DRUGS (6)
  1. CYMBALTA [Suspect]
     Indication: BIPOLAR DISORDER
     Dosage: 180 MG DAY
     Dates: start: 20050101
  2. LITHIUM [Concomitant]
  3. KLONOPIN [Concomitant]
  4. TRAZODONE [Concomitant]
  5. DITROPAN [Concomitant]
  6. EFFEXOR [Concomitant]

REACTIONS (5)
  - INCREASED APPETITE [None]
  - INSOMNIA [None]
  - MANIA [None]
  - PRESCRIBED OVERDOSE [None]
  - SEXUAL ACTIVITY INCREASED [None]
